FAERS Safety Report 7511696-X (Version None)
Quarter: 2011Q2

REPORT INFORMATION
  Report Type: 
  Country: None (occurrence: None)
  Receive Date: 20110531
  Receipt Date: 20110523
  Transmission Date: 20111010
  Serious: Yes (Death, Life-Threatening, Hospitalization, Other)
  Sender: FDA-Public Use
  Company Number: FR-ASTELLAS-2011US001876

PATIENT
  Sex: Male
  Weight: 55 kg

DRUGS (23)
  1. KETALAR [Concomitant]
     Indication: SEDATION
     Dosage: UNK
     Route: 042
  2. FENTA [Concomitant]
     Indication: ANAESTHESIA
     Dosage: UNK
     Route: 042
  3. NEXIUM [Concomitant]
     Indication: PROPHYLAXIS
     Dosage: UNK
     Route: 042
  4. AMBISOME [Suspect]
     Indication: ZYGOMYCOSIS
     Dosage: 420 MG, UNKNOWN/D
     Route: 042
     Dates: start: 20110331
  5. FLAGYL [Concomitant]
     Indication: INFECTION
     Dosage: 1.5 UNK, UNKNOWN/D
     Route: 042
     Dates: end: 20110403
  6. DORIBAX [Concomitant]
     Indication: PRODUCT USED FOR UNKNOWN INDICATION
     Dosage: UNK
     Route: 065
     Dates: end: 20110403
  7. ENTOCORT EC [Concomitant]
     Indication: PRODUCT USED FOR UNKNOWN INDICATION
     Dosage: UNK
     Route: 065
  8. PIPERACILLIN AND TAZOBACTAM [Concomitant]
     Indication: PYREXIA
     Dosage: UNK
     Route: 065
  9. CATAPRES [Concomitant]
     Indication: SEDATION
     Dosage: UNK
     Route: 042
  10. BACTRIM [Concomitant]
     Indication: PROPHYLAXIS
     Dosage: 400 UNK, UNKNOWN/D
     Route: 042
  11. MIDAZOLAM HYDROCHLORIDE [Concomitant]
     Indication: ANAESTHESIA
     Dosage: UNK
     Route: 042
  12. VANCOMYCINE HYDROCHLORIDE [Concomitant]
     Indication: INFECTION
     Dosage: 0.5 UNK, UNKNOWN/D
     Route: 042
     Dates: start: 20110331
  13. RAPAMUNE [Concomitant]
     Indication: PRODUCT USED FOR UNKNOWN INDICATION
     Dosage: UNK
     Route: 065
     Dates: start: 20110307
  14. RAPAMUNE [Concomitant]
     Indication: PRODUCT USED FOR UNKNOWN INDICATION
     Dosage: UNK
     Route: 065
  15. ZITHROMAX [Concomitant]
     Indication: PRODUCT USED FOR UNKNOWN INDICATION
     Dosage: UNK
     Route: 065
  16. AMBISOME [Suspect]
     Dosage: 550 MG, UNKNOWN/D
     Route: 042
     Dates: start: 20110331, end: 20110409
  17. ZOVIRAX [Concomitant]
     Indication: PRODUCT USED FOR UNKNOWN INDICATION
     Dosage: UNK
     Route: 065
  18. MORPHINE [Concomitant]
     Indication: PRODUCT USED FOR UNKNOWN INDICATION
     Dosage: UNK
     Route: 065
  19. ACETAMINOPHEN [Concomitant]
     Indication: PRODUCT USED FOR UNKNOWN INDICATION
     Dosage: UNK
     Route: 065
  20. PLITICAN [Concomitant]
     Indication: PRODUCT USED FOR UNKNOWN INDICATION
     Dosage: UNK
     Route: 065
  21. PROGRAF [Suspect]
     Indication: PRODUCT USED FOR UNKNOWN INDICATION
     Dosage: UNK
     Route: 065
     Dates: start: 20110307
  22. CANCIDAS [Concomitant]
     Indication: PRODUCT USED FOR UNKNOWN INDICATION
     Dosage: UNK
     Route: 065
     Dates: end: 20110330
  23. SOLU-MEDROL [Concomitant]
     Indication: PRODUCT USED FOR UNKNOWN INDICATION
     Dosage: UNK
     Route: 065

REACTIONS (6)
  - SHOCK [None]
  - SEPTIC SHOCK [None]
  - HYPOVOLAEMIC SHOCK [None]
  - RENAL TUBULAR DISORDER [None]
  - OVERDOSE [None]
  - RENAL FAILURE [None]
